FAERS Safety Report 6737615-1 (Version None)
Quarter: 2010Q2

REPORT INFORMATION
  Report Type: 
  Country: None (occurrence: None)
  Receive Date: 20100521
  Receipt Date: 20100521
  Transmission Date: 20101027
  Serious: Yes (Other)
  Sender: FDA-Public Use
  Company Number: None

PATIENT
  Age: 31 Year
  Sex: Female
  Weight: 61.6892 kg

DRUGS (1)
  1. MIRENA [Suspect]
     Indication: CONTRACEPTION
     Dates: start: 20100202, end: 20100424

REACTIONS (9)
  - AGGRESSION [None]
  - FRUSTRATION [None]
  - IMPULSIVE BEHAVIOUR [None]
  - MEDICAL DEVICE COMPLICATION [None]
  - QUALITY OF LIFE DECREASED [None]
  - SEXUAL DYSFUNCTION [None]
  - SOCIAL PROBLEM [None]
  - VAGINAL DISCHARGE [None]
  - VAGINAL ODOUR [None]
